FAERS Safety Report 8593021-9 (Version None)
Quarter: 2012Q3

REPORT INFORMATION
  Report Type: 
  Country: None (occurrence: None)
  Receive Date: 20120814
  Receipt Date: 20120801
  Transmission Date: 20120928
  Serious: Yes (Hospitalization, Other)
  Sender: FDA-Public Use
  Company Number: JP-FRI-1000036745

PATIENT
  Sex: Female

DRUGS (4)
  1. OTHER SSRIS [Concomitant]
     Indication: PRODUCT USED FOR UNKNOWN INDICATION
  2. LUDIOMIL [Concomitant]
     Route: 048
     Dates: start: 20111102
  3. LEXAPRO [Suspect]
     Indication: DEPRESSION
     Dosage: 10 MG
     Route: 048
     Dates: start: 20111120, end: 20111121
  4. AMOXAPINE [Concomitant]
     Indication: PRODUCT USED FOR UNKNOWN INDICATION

REACTIONS (5)
  - HYPERHIDROSIS [None]
  - TREMOR [None]
  - ACTIVATION SYNDROME [None]
  - PALPITATIONS [None]
  - BLOOD PRESSURE INCREASED [None]
